FAERS Safety Report 4540472-5 (Version None)
Quarter: 2004Q4

REPORT INFORMATION
  Report Type: 
  Country: None (occurrence: None)
  Receive Date: 20041229
  Receipt Date: 20041025
  Transmission Date: 20050328
  Serious: Yes (Other)
  Sender: FDA-Public Use
  Company Number: US-BRISTOL-MYERS SQUIBB COMPANY-12745121

PATIENT
  Age: 21 Year
  Sex: Female
  Weight: 83 kg

DRUGS (7)
  1. ABILIFY [Suspect]
     Indication: HALLUCINATION, AUDITORY
     Dosage: STOPPED ON 23-FEB-2004; RESTARTED ON 13-JUN-2003 AND CONTINUED
     Route: 048
     Dates: start: 20030113
  2. ABILIFY [Suspect]
     Indication: MOOD ALTERED
     Dosage: STOPPED ON 23-FEB-2004; RESTARTED ON 13-JUN-2003 AND CONTINUED
     Route: 048
     Dates: start: 20030113
  3. ABILIFY [Suspect]
     Indication: ADJUSTMENT DISORDER
     Dosage: STOPPED ON 23-FEB-2004; RESTARTED ON 13-JUN-2003 AND CONTINUED
     Route: 048
     Dates: start: 20030113
  4. WELLBUTRIN [Concomitant]
  5. RISPERDAL [Concomitant]
  6. DEPO-PROVERA [Concomitant]
  7. GEODON [Concomitant]

REACTIONS (2)
  - DYSFUNCTIONAL UTERINE BLEEDING [None]
  - OVARIAN CYST [None]
